FAERS Safety Report 21022636 (Version 2)
Quarter: 2022Q3

REPORT INFORMATION
  Report Type: Spontaneous
  Country: IN (occurrence: IN)
  Receive Date: 20220629
  Receipt Date: 20220701
  Transmission Date: 20221026
  Serious: Yes (Other)
  Sender: FDA-Public Use
  Company Number: IN-PFIZER INC-2020081710

PATIENT
  Age: 70 Year
  Sex: Female

DRUGS (17)
  1. PALBOCICLIB [Suspect]
     Active Substance: PALBOCICLIB
     Indication: Breast cancer metastatic
     Dosage: 125 MG, 1X/DAY
     Route: 048
     Dates: start: 20190308
  2. PALBOCICLIB [Suspect]
     Active Substance: PALBOCICLIB
     Dosage: 125 MG, CYCLIC (1X/DAY, 3 WEEKS ON THEN 1 WEEK OFF)
     Route: 048
     Dates: start: 20190312, end: 201904
  3. PALBOCICLIB [Suspect]
     Active Substance: PALBOCICLIB
     Dosage: 125 MG, CYCLIC 1X/DAY FOR 3 WEEKS)
     Route: 048
     Dates: start: 20190517
  4. PALBOCICLIB [Suspect]
     Active Substance: PALBOCICLIB
     Dosage: 125 MG, CYCLIC (1X/DAY)
     Route: 048
     Dates: start: 20190615, end: 20190806
  5. PALBOCICLIB [Suspect]
     Active Substance: PALBOCICLIB
     Dosage: 125 MG, CYCLIC (1X/DAY)
     Route: 048
     Dates: start: 20190826, end: 20190916
  6. PALBOCICLIB [Suspect]
     Active Substance: PALBOCICLIB
     Dosage: 125 MG, CYCLIC (1X/DAY)
     Route: 048
     Dates: end: 20191022
  7. PALBOCICLIB [Suspect]
     Active Substance: PALBOCICLIB
     Dosage: 125 MG, CYCLIC, (1X/DAY 3 WEEKS ON THEN 1 WEEK OFF)
     Route: 048
  8. PALBOCICLIB [Suspect]
     Active Substance: PALBOCICLIB
     Dosage: 125 MG, CYCLIC (1X/DAY FOR 3 WEEKS)
     Route: 048
     Dates: start: 20191220
  9. D3 MUST [Concomitant]
     Dosage: 60000 DF, MONTHLY (EVERY SUNDAY FOR 3 MONTHS ON THEN MONTHLY THERAPY)
  10. ASPIRIN [Concomitant]
     Active Substance: ASPIRIN
     Dosage: UNK
  11. LETROZOLE [Concomitant]
     Active Substance: LETROZOLE
     Dosage: 2.5 MG, 1X/DAY
     Route: 048
  12. RAZO D [Concomitant]
     Dosage: UNK
  13. CALCIUM CARBONATE\CHOLECALCIFEROL [Concomitant]
     Active Substance: CALCIUM CARBONATE\CHOLECALCIFEROL
     Dosage: 500 MG, 1-1
  14. OSTEOFOS [Concomitant]
     Indication: Osteoporosis
     Dosage: 70 MG, WEEKLY (EVERY SUNDAY (EMPTY STOMACH) )
  15. LETROZOLE [Concomitant]
     Active Substance: LETROZOLE
     Dosage: 2.5 MG, 1X/DAY
     Route: 048
  16. ONDEM [Concomitant]
  17. APIGAT [Concomitant]
     Dosage: UNK

REACTIONS (25)
  - Leukopenia [Unknown]
  - Rectal haemorrhage [Unknown]
  - Lymphocytosis [Unknown]
  - Lymphoedema [Not Recovered/Not Resolved]
  - Oedema peripheral [Unknown]
  - Fibrosis [Unknown]
  - Pain in extremity [Not Recovered/Not Resolved]
  - Chest pain [Unknown]
  - Hypoacusis [Unknown]
  - Constipation [Unknown]
  - Decreased appetite [Unknown]
  - Full blood count decreased [Unknown]
  - Pallor [Not Recovered/Not Resolved]
  - Oral disorder [Unknown]
  - Hiatus hernia [Unknown]
  - Tongue erythema [Unknown]
  - Red blood cell count decreased [Unknown]
  - Haemoglobin decreased [Unknown]
  - Haematocrit decreased [Unknown]
  - Red cell distribution width increased [Unknown]
  - Lymphocyte count increased [Unknown]
  - Monocyte count decreased [Unknown]
  - White blood cell count decreased [Unknown]
  - Arthritis [Unknown]
  - Joint swelling [Unknown]

NARRATIVE: CASE EVENT DATE: 20210201
